FAERS Safety Report 4749113-5 (Version None)
Quarter: 2005Q3

REPORT INFORMATION
  Report Type: 
  Country: None (occurrence: None)
  Receive Date: 20050817
  Receipt Date: 20050801
  Transmission Date: 20060218
  Serious: Yes (Other)
  Sender: FDA-Public Use
  Company Number: 11994

PATIENT
  Sex: Male

DRUGS (2)
  1. CARBOPLATIN [Suspect]
     Indication: PROSTATE CANCER
     Dosage: 20 MG/M2 QD IV
     Route: 042
  2. ETOPOSIDE [Suspect]
     Indication: PROSTATE CANCER
     Dosage: 50 MG QD PO
     Route: 048

REACTIONS (1)
  - FEBRILE NEUTROPENIA [None]
